FAERS Safety Report 12291015 (Version 1)
Quarter: 2016Q2

REPORT INFORMATION
  Report Type: Not Available
  Country: CN (occurrence: CN)
  Receive Date: 20160421
  Receipt Date: 20160421
  Transmission Date: 20160815
  Serious: Yes (Death, Life-Threatening, Hospitalization, Other)
  Sender: FDA-Public Use
  Company Number: CN-AKORN-29162

PATIENT
  Age: 64 Year
  Sex: Male

DRUGS (1)
  1. LEVOFLOXACIN ORAL SOLUTION [Suspect]
     Active Substance: LEVOFLOXACIN

REACTIONS (4)
  - Blood disorder [Fatal]
  - Death [Fatal]
  - Pulmonary toxicity [Fatal]
  - Disease progression [Fatal]
